FAERS Safety Report 10269654 (Version 1)
Quarter: 2014Q3

REPORT INFORMATION
  Report Type: Spontaneous
  Country: FR (occurrence: FR)
  Receive Date: 20140701
  Receipt Date: 20140701
  Transmission Date: 20150326
  Serious: Yes (Death, Other)
  Sender: FDA-Public Use
  Company Number: FR-CELGENEUS-056-POMAL-14063232

PATIENT
  Sex: Female

DRUGS (1)
  1. IMNOVID [Suspect]
     Active Substance: POMALIDOMIDE
     Indication: AMYLOIDOSIS
     Route: 048

REACTIONS (5)
  - Aphasia [Unknown]
  - Encephalitis [Unknown]
  - Transient ischaemic attack [Unknown]
  - Epilepsy [Unknown]
  - Death [Fatal]
